FAERS Safety Report 15471528 (Version 1)
Quarter: 2018Q4

REPORT INFORMATION
  Report Type: Report from Study
  Country: GR (occurrence: GR)
  Receive Date: 20181007
  Receipt Date: 20181007
  Transmission Date: 20190205
  Serious: Yes (Hospitalization)
  Sender: FDA-Public Use
  Company Number: GR-ELI_LILLY_AND_COMPANY-GR201810001470

PATIENT
  Age: 72 Year
  Sex: Female

DRUGS (9)
  1. FERRUM                             /00023501/ [Concomitant]
     Indication: HAEMOGLOBIN DECREASED
     Dosage: 1 DF, DAILY
     Route: 048
  2. CALCIUM [Concomitant]
     Active Substance: CALCIUM
     Indication: PRODUCT USED FOR UNKNOWN INDICATION
     Dosage: 1 DF, DAILY
     Route: 048
  3. HYDROCORTISONE. [Concomitant]
     Active Substance: HYDROCORTISONE
     Indication: POSTPARTUM HYPOPITUITARISM
     Dosage: UNK, DAILY (1 AND 1/4 TABLET DAILY)
     Route: 048
  4. CARVEPEN [Concomitant]
     Active Substance: CARVEDILOL
     Indication: TACHYCARDIA
     Dosage: UNK, DAILY (2.5 TABLET DAILY)
     Route: 048
  5. FERRUM                             /00023501/ [Concomitant]
     Indication: BLOOD CHOLESTEROL DECREASED
  6. TROFOCARD [Concomitant]
     Indication: MUSCLE SPASMS
     Dosage: 1 DF, DAILY
     Route: 048
  7. LANTUS [Concomitant]
     Active Substance: INSULIN GLARGINE
     Indication: TYPE 2 DIABETES MELLITUS
     Dosage: 18 U, DAILY (10-18 UNITS DAILY)
     Route: 058
  8. NOVORAPID [Concomitant]
     Active Substance: INSULIN ASPART
     Indication: TYPE 2 DIABETES MELLITUS
     Dosage: 10 U, DAILY (5-10 UNITS PER DAY)
     Route: 058
  9. TERIPARATIDE [Suspect]
     Active Substance: TERIPARATIDE
     Indication: OSTEOPOROSIS
     Dosage: 20 UG, DAILY
     Route: 058
     Dates: start: 20180707

REACTIONS (4)
  - Cyst [Recovering/Resolving]
  - Mobility decreased [Recovering/Resolving]
  - Back pain [Recovering/Resolving]
  - Arthralgia [Recovering/Resolving]

NARRATIVE: CASE EVENT DATE: 20180917
